FAERS Safety Report 9882078 (Version 1)
Quarter: 2014Q1

REPORT INFORMATION
  Report Type: Spontaneous
  Country: US (occurrence: None)
  Receive Date: 20140205
  Receipt Date: 20140205
  Transmission Date: 20141002
  Serious: Yes (Death, Hospitalization)
  Sender: FDA-Public Use
  Company Number: IMP_07443_2014

PATIENT
  Age: 16 Year
  Sex: Male

DRUGS (2)
  1. ALPRAZOLAM [Suspect]
     Indication: PRODUCT USED FOR UNKNOWN INDICATION
     Dosage: 29 DF (NOT THE PRESCRIBED DOSE) ORAL (UNKNOWN UNTIL NOT CONTINUING)?
  2. ACETAMINOPHEN W/HYDROCODONE [Suspect]
     Indication: PRODUCT USED FOR UNKNOWN INDICATION
     Dosage: 26 DF, NOT THE PRESCRIBED DOSE, ORAL (UNKNOWN UNTIL NOT CONTINUING)?
     Route: 048

REACTIONS (12)
  - Poisoning [None]
  - Exposure via ingestion [None]
  - Completed suicide [None]
  - Dysarthria [None]
  - Cardio-respiratory arrest [None]
  - Brain oedema [None]
  - Brain death [None]
  - Hypertension [None]
  - Pleural effusion [None]
  - Lactic acidosis [None]
  - Shock [None]
  - Dehydration [None]
